FAERS Safety Report 20663173 (Version 3)
Quarter: 2022Q2

REPORT INFORMATION
  Report Type: Other
  Country: US (occurrence: None)
  Receive Date: 20220401
  Receipt Date: 20220610
  Transmission Date: 20220720
  Serious: No
  Sender: FDA-Public Use
  Company Number: US-ROCHE-3062999

PATIENT
  Age: 39 Year
  Sex: Male
  Weight: 81.720 kg

DRUGS (11)
  1. OCREVUS [Suspect]
     Active Substance: OCRELIZUMAB
     Indication: Primary progressive multiple sclerosis
     Route: 065
     Dates: start: 20211231
  2. AUBAGIO [Suspect]
     Active Substance: TERIFLUNOMIDE
     Indication: Multiple sclerosis
     Route: 065
  3. TYLENOL [Concomitant]
     Active Substance: ACETAMINOPHEN
     Dates: start: 20201202
  4. BACLOFEN [Concomitant]
     Active Substance: BACLOFEN
  5. BACLOFEN [Concomitant]
     Active Substance: BACLOFEN
     Dates: start: 20210225
  6. NEURONTIN [Concomitant]
     Active Substance: GABAPENTIN
     Dates: start: 20210520
  7. AUBAGIO [Concomitant]
     Active Substance: TERIFLUNOMIDE
  8. AUBAGIO [Concomitant]
     Active Substance: TERIFLUNOMIDE
     Dates: start: 20210624
  9. CELEXA [Concomitant]
     Active Substance: CITALOPRAM HYDROBROMIDE
  10. CELEXA [Concomitant]
     Active Substance: CITALOPRAM HYDROBROMIDE
     Dates: start: 20210722
  11. NAPROXEN [Concomitant]
     Active Substance: NAPROXEN

REACTIONS (12)
  - Blood glucose increased [Unknown]
  - COVID-19 [Not Recovered/Not Resolved]
  - Prostatitis [Recovered/Resolved]
  - Tinnitus [Not Recovered/Not Resolved]
  - Musculoskeletal stiffness [Not Recovered/Not Resolved]
  - Fatigue [Not Recovered/Not Resolved]
  - Fall [Unknown]
  - Visual impairment [Not Recovered/Not Resolved]
  - Gastric disorder [Unknown]
  - Vomiting [Unknown]
  - Diarrhoea [Not Recovered/Not Resolved]
  - Nausea [Not Recovered/Not Resolved]

NARRATIVE: CASE EVENT DATE: 20220109
